FAERS Safety Report 5802284-1 (Version None)
Quarter: 2008Q3

REPORT INFORMATION
  Report Type: 
  Country: None (occurrence: None)
  Receive Date: 20080707
  Receipt Date: 20080625
  Transmission Date: 20090109
  Serious: Yes (Other)
  Sender: FDA-Public Use
  Company Number: JP-ROCHE-573130

PATIENT
  Age: 70 Year
  Sex: Male
  Weight: 65 kg

DRUGS (1)
  1. ROCEPHIN [Suspect]
     Indication: LYMPHADENITIS
     Route: 041
     Dates: start: 20080517, end: 20080518

REACTIONS (1)
  - STEVENS-JOHNSON SYNDROME [None]
